FAERS Safety Report 12174079 (Version 1)
Quarter: 2016Q1

REPORT INFORMATION
  Report Type: Spontaneous
  Country: US (occurrence: None)
  Receive Date: 20160311
  Receipt Date: 20160311
  Transmission Date: 20160526
  Serious: No
  Sender: FDA-Public Use
  Company Number: None

PATIENT
  Age: 65 Year
  Sex: Male
  Weight: 89.7 kg

DRUGS (2)
  1. METHOTREXATE [Suspect]
     Active Substance: METHOTREXATE
     Dates: end: 20151012
  2. ONCASPAR [Suspect]
     Active Substance: PEGASPARGASE
     Dates: end: 20151013

REACTIONS (1)
  - Hypertriglyceridaemia [None]

NARRATIVE: CASE EVENT DATE: 20151019
